FAERS Safety Report 4324942-0 (Version None)
Quarter: 2004Q1

REPORT INFORMATION
  Report Type: 
  Country: None (occurrence: None)
  Receive Date: 20040325
  Receipt Date: 20040325
  Transmission Date: 20041129
  Serious: Yes (Hospitalization)
  Sender: FDA-Public Use
  Company Number: None

PATIENT
  Age: 61 Year
  Sex: Male
  Weight: 63.5 kg

DRUGS (2)
  1. NAMENDA [Suspect]
     Indication: DEMENTIA ALZHEIMER'S TYPE
  2. PHENYTOIN [Suspect]
     Indication: CONVULSION
     Dosage: 200 MG Q AM , 100 MG Q PM
     Dates: start: 19770101

REACTIONS (3)
  - ATAXIA [None]
  - LETHARGY [None]
  - PNEUMONIA ASPIRATION [None]
